FAERS Safety Report 15587993 (Version 2)
Quarter: 2018Q4

REPORT INFORMATION
  Report Type: Spontaneous
  Country: US (occurrence: US)
  Receive Date: 20181105
  Receipt Date: 20181126
  Transmission Date: 20190205
  Serious: Yes (Hospitalization)
  Sender: FDA-Public Use
  Company Number: US-ACTELION-A-US2018-181147

PATIENT
  Age: 8 Month
  Sex: Male
  Weight: 9.7 kg

DRUGS (2)
  1. REMODULIN [Concomitant]
     Active Substance: TREPROSTINIL
  2. TRACLEER [Suspect]
     Active Substance: BOSENTAN
     Indication: PULMONARY ARTERIAL HYPERTENSION
     Dosage: 32 MG, BID VIA G-TUBE
     Route: 049

REACTIONS (3)
  - Pyrexia [Unknown]
  - Cyanosis [Unknown]
  - Surgery [Unknown]
